FAERS Safety Report 11722428 (Version 9)
Quarter: 2020Q4

REPORT INFORMATION
  Report Type: Spontaneous
  Country: US (occurrence: US)
  Receive Date: 20151111
  Receipt Date: 20201206
  Transmission Date: 20210113
  Serious: Yes (Hospitalization, Congenital Anomaly, Other)
  Sender: FDA-Public Use
  Company Number: PHEH2015US022986

PATIENT
  Sex: Female

DRUGS (4)
  1. ONDANSETRON HYDROCHLORIDE. [Suspect]
     Active Substance: ONDANSETRON HYDROCHLORIDE
     Indication: FOETAL EXPOSURE DURING PREGNANCY
     Route: 064
  2. ZOFRAN ODT [Suspect]
     Active Substance: ONDANSETRON HYDROCHLORIDE
     Indication: FOETAL EXPOSURE DURING PREGNANCY
     Dosage: MOTHER DOSE: AS NEEDED (PRN)
     Route: 064
  3. ONDANSETRON HYDROCHLORIDE. [Suspect]
     Active Substance: ONDANSETRON HYDROCHLORIDE
     Indication: FOETAL EXPOSURE DURING PREGNANCY
     Route: 064
  4. ONDANSETRON DR REDDY [Suspect]
     Active Substance: ONDANSETRON
     Indication: FOETAL EXPOSURE DURING PREGNANCY
     Dosage: MOTHER^S DOSE: 08 MG
     Route: 064

REACTIONS (51)
  - Umbilical haemorrhage [Unknown]
  - Otitis media chronic [Unknown]
  - Pain [Unknown]
  - Abdominal pain [Unknown]
  - Weight gain poor [Unknown]
  - Constipation [Unknown]
  - Arthropod bite [Unknown]
  - Pyrexia [Unknown]
  - Failure to thrive [Unknown]
  - Foetal exposure during pregnancy [Unknown]
  - Thyroid disorder [Unknown]
  - Vaginal infection [Unknown]
  - Eye discharge [Unknown]
  - Candida infection [Unknown]
  - Anhedonia [Unknown]
  - Speech disorder [Unknown]
  - Dermatitis atopic [Unknown]
  - Vomiting [Unknown]
  - Dyspnoea [Unknown]
  - Influenza [Unknown]
  - Multiple congenital abnormalities [Unknown]
  - Immune system disorder [Unknown]
  - Gastrooesophageal reflux disease [Unknown]
  - Cough [Unknown]
  - Poor feeding infant [Unknown]
  - Otitis externa [Unknown]
  - Viral infection [Unknown]
  - Cleft palate [Unknown]
  - Jaundice [Unknown]
  - Injury [Unknown]
  - Body tinea [Unknown]
  - Upper respiratory tract infection [Unknown]
  - Oropharyngeal pain [Unknown]
  - Pharyngitis [Unknown]
  - Irritability [Unknown]
  - Renal tubular acidosis [Unknown]
  - Hypoacusis [Unknown]
  - Dermatitis diaper [Unknown]
  - Otorrhoea [Unknown]
  - Diarrhoea [Unknown]
  - Localised infection [Unknown]
  - Anxiety [Unknown]
  - Eustachian tube dysfunction [Unknown]
  - Cerumen impaction [Unknown]
  - Congenital anomaly [Unknown]
  - Infection [Unknown]
  - Malnutrition [Unknown]
  - Scar [Unknown]
  - Decreased appetite [Unknown]
  - Tympanic membrane perforation [Unknown]
  - Acute sinusitis [Unknown]
